FAERS Safety Report 7291637-3 (Version None)
Quarter: 2011Q1

REPORT INFORMATION
  Report Type: 
  Country: None (occurrence: None)
  Receive Date: 20110214
  Receipt Date: 20110207
  Transmission Date: 20110831
  Serious: Yes (Other)
  Sender: FDA-Public Use
  Company Number: US-CEPHALON-2011000454

PATIENT
  Sex: Female
  Weight: 4 kg

DRUGS (1)
  1. NUVIGIL [Suspect]
     Route: 064
     Dates: start: 20100310, end: 20101121

REACTIONS (1)
  - PREMATURE BABY [None]
